FAERS Safety Report 22111385 (Version 1)
Quarter: 2023Q1

REPORT INFORMATION
  Report Type: Spontaneous
  Country: US (occurrence: US)
  Receive Date: 20230317
  Receipt Date: 20230317
  Transmission Date: 20230418
  Serious: No
  Sender: FDA-Public Use
  Company Number: US-009507513-2303USA002127

PATIENT
  Age: 80 Year

DRUGS (1)
  1. KEYTRUDA [Suspect]
     Active Substance: PEMBROLIZUMAB
     Indication: Gastric cancer
     Dosage: SINGLE DOSE  EVERY 3 WEEKS
     Dates: start: 20230119

REACTIONS (5)
  - Blood thyroid stimulating hormone decreased [Unknown]
  - Blood iron decreased [Unknown]
  - Dysphonia [Unknown]
  - Swelling [Unknown]
  - Fatigue [Unknown]

NARRATIVE: CASE EVENT DATE: 20230302
